FAERS Safety Report 5682416-9 (Version None)
Quarter: 2008Q1

REPORT INFORMATION
  Report Type: 
  Country: None (occurrence: None)
  Receive Date: 20080326
  Receipt Date: 20080326
  Transmission Date: 20080703
  Serious: Yes (Hospitalization)
  Sender: FDA-Public Use
  Company Number: None

PATIENT
  Sex: Male
  Weight: 63.9 kg

DRUGS (2)
  1. CARBOPLATIN [Suspect]
     Dosage: 292 MG
  2. TAXOL [Suspect]
     Dosage: 79 MG

REACTIONS (2)
  - BLOOD GLUCOSE INCREASED [None]
  - DEHYDRATION [None]
